FAERS Safety Report 21711736 (Version 6)
Quarter: 2025Q2

REPORT INFORMATION
  Report Type: Report from Study
  Country: JP (occurrence: JP)
  Receive Date: 20221212
  Receipt Date: 20250508
  Transmission Date: 20250716
  Serious: Yes (Hospitalization)
  Sender: ROCHE
  Company Number: JP-CHUGAI-2022048770

PATIENT
  Age: 56 Year
  Sex: Male
  Weight: 60.0 kg

DRUGS (7)
  1. HEMLIBRA [Suspect]
     Active Substance: EMICIZUMAB-KXWH
     Indication: Haemophilia A without inhibitors
     Dosage: 180 MILLIGRAM, ONCE/WEEK
     Route: 058
     Dates: start: 20221107, end: 20221128
  2. HEMLIBRA [Suspect]
     Active Substance: EMICIZUMAB-KXWH
     Route: 058
     Dates: start: 20221205
  3. PHENYTOIN SODIUM [Concomitant]
     Active Substance: PHENYTOIN SODIUM
     Dosage: 70 MILLIGRAM, BID
     Route: 048
  4. HALOPERIDOL [Concomitant]
     Active Substance: HALOPERIDOL
     Dosage: 1.5 MILLIGRAM, BID
     Route: 048
  5. BIPERIDEN HYDROCHLORIDE [Concomitant]
     Active Substance: BIPERIDEN HYDROCHLORIDE
     Dosage: 1 MILLIGRAM, BID
     Route: 048
  6. MAGNESIUM OXIDE [Concomitant]
     Active Substance: MAGNESIUM OXIDE
     Dosage: 660 MILLIGRAM, TID
     Route: 048
     Dates: start: 20221003
  7. HERBALS [Concomitant]
     Active Substance: HERBALS
     Dosage: 1 DOSAGE FORM, TID
     Route: 048
     Dates: start: 20221003

REACTIONS (2)
  - Activated partial thromboplastin time prolonged [Not Recovered/Not Resolved]
  - Muscle haemorrhage [Recovering/Resolving]

NARRATIVE: CASE EVENT DATE: 20221130
